FAERS Safety Report 8984830 (Version 1)
Quarter: 2012Q4

REPORT INFORMATION
  Report Type: Report from Study
  Country: US (occurrence: US)
  Receive Date: 20121226
  Receipt Date: 20121226
  Transmission Date: 20130627
  Serious: Yes (Hospitalization)
  Sender: FDA-Public Use
  Company Number: US-US-EMD SERONO, INC.-7176976

PATIENT
  Age: 30 Year
  Sex: Female

DRUGS (5)
  1. REBIF [Suspect]
     Indication: MULTIPLE SCLEROSIS
     Route: 058
     Dates: start: 20120509, end: 20121121
  2. AMANTADINE [Suspect]
     Indication: FATIGUE
     Dates: start: 20121114, end: 20121121
  3. ALLEGRA [Concomitant]
     Indication: HYPERSENSITIVITY
  4. ADDERALL [Concomitant]
     Indication: ATTENTION DEFICIT/HYPERACTIVITY DISORDER
  5. ZOLOFT [Concomitant]
     Indication: FEELING OF RELAXATION

REACTIONS (5)
  - Schizophrenia [Recovered/Resolved]
  - Vision blurred [Unknown]
  - Balance disorder [Unknown]
  - Fatigue [Unknown]
  - Multiple sclerosis relapse [Not Recovered/Not Resolved]
